FAERS Safety Report 11203212 (Version 1)
Quarter: 2015Q2

REPORT INFORMATION
  Report Type: Spontaneous
  Country: US (occurrence: US)
  Receive Date: 20150619
  Receipt Date: 20150619
  Transmission Date: 20150821
  Serious: No
  Sender: FDA-Public Use
  Company Number: US-PFIZER INC-2015201139

PATIENT
  Age: 16 Year
  Sex: Female
  Weight: 104 kg

DRUGS (5)
  1. CEFPROZIL. [Suspect]
     Active Substance: CEFPROZIL
     Indication: PHARYNGITIS STREPTOCOCCAL
     Dosage: 250 MG, 2X/DAY (EVERY 12 HOURS)
  2. ADVIL [Suspect]
     Active Substance: IBUPROFEN
     Indication: HEADACHE
     Dosage: 400MG, UNK
  3. ADVIL [Suspect]
     Active Substance: IBUPROFEN
     Indication: PAIN
  4. ADVIL [Suspect]
     Active Substance: IBUPROFEN
     Indication: PAIN
     Dosage: 800MG EVERY SIX HOURS
     Dates: start: 20150611, end: 20150612
  5. ADVIL [Suspect]
     Active Substance: IBUPROFEN
     Indication: HEADACHE
     Dosage: 800MG EVERY SIX HOURS
     Dates: start: 20150611

REACTIONS (2)
  - Visual impairment [Not Recovered/Not Resolved]
  - Diplopia [Not Recovered/Not Resolved]

NARRATIVE: CASE EVENT DATE: 20150612
